FAERS Safety Report 9336519 (Version 2)
Quarter: 2013Q4

REPORT INFORMATION
  Report Type: Spontaneous
  Country: PH (occurrence: PH)
  Receive Date: 20130607
  Receipt Date: 20131113
  Transmission Date: 20140711
  Serious: Yes (Death)
  Sender: FDA-Public Use
  Company Number: PH-009507513-1306PHL002527

PATIENT
  Age: 33 Year
  Sex: Male

DRUGS (3)
  1. JANUMET [Suspect]
     Indication: DIABETES MELLITUS
     Dosage: 1 DF, QD
     Route: 048
     Dates: end: 201205
  2. JANUVIA [Suspect]
     Indication: DIABETES MELLITUS
     Dosage: 50 MG, ONCE A DAY (AFTER LUNCH)
     Route: 048
     Dates: start: 2011
  3. GLIMEPIRIDE (+) METFORMIN HYDROCHLORIDE [Concomitant]
     Indication: BLOOD GLUCOSE ABNORMAL

REACTIONS (1)
  - Cardiac failure congestive [Fatal]
